FAERS Safety Report 24278795 (Version 1)
Quarter: 2024Q3

REPORT INFORMATION
  Report Type: Spontaneous
  Country: US (occurrence: US)
  Receive Date: 20240903
  Receipt Date: 20240903
  Transmission Date: 20241017
  Serious: Yes (Hospitalization, Other)
  Sender: INCYTE
  Company Number: US-INCYTE CORPORATION-2024IN008852

PATIENT

DRUGS (1)
  1. JAKAFI [Suspect]
     Active Substance: RUXOLITINIB
     Indication: Graft versus host disease
     Dosage: 5 MG 2 TABLETS (10 MG TOTAL) IN THE MORNING AND 1 TABLET (5 MG TOTAL) IN THE EVENING
     Route: 048

REACTIONS (2)
  - Disease complication [Unknown]
  - Leukaemia recurrent [Unknown]
